FAERS Safety Report 5453113-X (Version None)
Quarter: 2007Q3

REPORT INFORMATION
  Report Type: 
  Country: None (occurrence: None)
  Receive Date: 20070914
  Receipt Date: 20070904
  Transmission Date: 20080115
  Serious: Yes (Congenital Anomaly)
  Sender: FDA-Public Use
  Company Number: PFIZER INC-2007070952

PATIENT
  Sex: Female
  Weight: 3.21 kg

DRUGS (6)
  1. NELFINAVIR MESILATE [Suspect]
     Indication: HIV INFECTION
     Route: 065
  2. ABACAVIR [Suspect]
  3. 3TC [Suspect]
  4. D4T [Suspect]
  5. AZT [Suspect]
  6. EFAVIRENZ [Suspect]

REACTIONS (1)
  - APLASIA CUTIS CONGENITA [None]
